FAERS Safety Report 5239170-4 (Version None)
Quarter: 2007Q1

REPORT INFORMATION
  Report Type: 
  Country: None (occurrence: None)
  Receive Date: 20061208
  Receipt Date: 20050311
  Transmission Date: 20070707
  Serious: Yes (Other)
  Sender: FDA-Public Use
  Company Number: 2005UW03931

PATIENT
  Age: 73 Year
  Sex: Female
  Weight: 68.038 kg

DRUGS (4)
  1. CRESTOR [Suspect]
     Indication: BLOOD CHOLESTEROL INCREASED
     Dosage: 10 MG DAILY PO
     Route: 048
     Dates: start: 20040901
  2. ATENOLOL [Concomitant]
  3. LISINOPRIL [Concomitant]
  4. LEVOXYL [Concomitant]

REACTIONS (2)
  - BURNING SENSATION [None]
  - RENAL PAIN [None]
